FAERS Safety Report 6610897-2 (Version None)
Quarter: 2010Q1

REPORT INFORMATION
  Report Type: 
  Country: None (occurrence: None)
  Receive Date: 20100219
  Receipt Date: 20100203
  Transmission Date: 20100710
  Serious: Yes (Death, Hospitalization, Other)
  Sender: FDA-Public Use
  Company Number: AUR-APL-2010-00377

PATIENT
  Age: 9 Day
  Sex: Female

DRUGS (5)
  1. ZIDOVUDINE [Suspect]
     Indication: HUMAN IMMUNODEFICIENCY VIRUS TRANSMISSION
  2. LAMIVUDINE [Suspect]
     Indication: HUMAN IMMUNODEFICIENCY VIRUS TRANSMISSION
  3. VIRAMUNE [Suspect]
     Indication: HUMAN IMMUNODEFICIENCY VIRUS TRANSMISSION
  4. ACYCLOVIR [Suspect]
     Indication: HERPES VIRUS INFECTION
  5. HEPATITIS B VIRUS [Suspect]
     Indication: HEPATITIS B IMMUNISATION

REACTIONS (7)
  - ACIDOSIS [None]
  - CONGENITAL HERPES SIMPLEX INFECTION [None]
  - CONVULSION NEONATAL [None]
  - DISSEMINATED INTRAVASCULAR COAGULATION IN NEWBORN [None]
  - GENERAL PHYSICAL HEALTH DETERIORATION [None]
  - LIVER FUNCTION TEST ABNORMAL [None]
  - NEONATAL DISORDER [None]
